FAERS Safety Report 9867328 (Version 1)
Quarter: 2014Q1

REPORT INFORMATION
  Report Type: Report from Study
  Country: CA (occurrence: CA)
  Receive Date: 20140204
  Receipt Date: 20140204
  Transmission Date: 20141002
  Serious: Yes (Other)
  Sender: FDA-Public Use
  Company Number: CA-JNJFOC-20140118014

PATIENT
  Age: 38 Year
  Sex: Male

DRUGS (5)
  1. REMICADE [Suspect]
     Indication: CROHN^S DISEASE
     Route: 042
     Dates: start: 2009
  2. BENADRYL [Concomitant]
     Route: 048
  3. TYLENOL [Concomitant]
     Route: 048
  4. METHOTREXATE [Concomitant]
     Dosage: DOSE WAS 1CC
     Route: 058
  5. SOLU CORTEF [Concomitant]
     Route: 042

REACTIONS (2)
  - Varicose vein [Recovering/Resolving]
  - Joint abscess [Recovering/Resolving]
